FAERS Safety Report 4951114-9 (Version None)
Quarter: 2006Q1

REPORT INFORMATION
  Report Type: 
  Country: None (occurrence: None)
  Receive Date: 20060322
  Receipt Date: 20050315
  Transmission Date: 20060701
  Serious: Yes (Disabling)
  Sender: FDA-Public Use
  Company Number: US-MERCK-0503USA03131

PATIENT
  Age: 64 Year
  Sex: Male
  Weight: 77 kg

DRUGS (3)
  1. VIOXX [Suspect]
     Indication: ARTHROPATHY
     Route: 048
     Dates: start: 19990101, end: 20010101
  2. SYNTHROID [Concomitant]
     Route: 065
  3. CALCIUM (UNSPECIFIED) [Concomitant]
     Route: 065

REACTIONS (16)
  - CARDIAC FAILURE [None]
  - CEREBROVASCULAR ACCIDENT [None]
  - CHEST PAIN [None]
  - DEPRESSION [None]
  - DIZZINESS [None]
  - FEAR [None]
  - HEART RATE IRREGULAR [None]
  - HEPATOCELLULAR DAMAGE [None]
  - INSOMNIA [None]
  - MYOCARDIAL INFARCTION [None]
  - OVERDOSE [None]
  - POLYTRAUMATISM [None]
  - RENAL DISORDER [None]
  - STRESS [None]
  - THROMBOSIS [None]
  - ULCER [None]
